FAERS Safety Report 6414342-1 (Version None)
Quarter: 2009Q4

REPORT INFORMATION
  Report Type: 
  Country: None (occurrence: None)
  Receive Date: 20091026
  Receipt Date: 20091014
  Transmission Date: 20100525
  Serious: Yes (Hospitalization)
  Sender: FDA-Public Use
  Company Number: US-CELGENEUS-163-50794-09101210

PATIENT
  Sex: Male
  Weight: 95 kg

DRUGS (21)
  1. VIDAZA [Suspect]
     Indication: MYELODYSPLASTIC SYNDROME
     Route: 051
     Dates: start: 20090921, end: 20090924
  2. GLIPIZIDE [Concomitant]
     Route: 048
  3. IMDUR [Concomitant]
     Indication: DRUG USE FOR UNKNOWN INDICATION
     Route: 048
  4. LYRICA [Concomitant]
     Indication: DIABETIC NEUROPATHY
     Route: 048
  5. METFORMIN HCL [Concomitant]
     Route: 048
  6. TOPROL-XL [Concomitant]
     Indication: HYPERTENSION
     Route: 048
  7. SIMVASTATIN [Concomitant]
     Route: 048
  8. RED BLOOD CELLS [Concomitant]
     Dosage: 2 UNITS
     Route: 051
     Dates: start: 20090925, end: 20090925
  9. RED BLOOD CELLS [Concomitant]
     Dosage: 2 UNITS
     Route: 051
     Dates: start: 20091006, end: 20091006
  10. RED BLOOD CELLS [Concomitant]
     Dosage: 2 UNITS
     Route: 051
     Dates: start: 20091012, end: 20091012
  11. RED BLOOD CELLS [Concomitant]
     Dosage: 1 UNIT
     Route: 051
     Dates: start: 20091013, end: 20091013
  12. PLATELETS [Concomitant]
     Dosage: 6 UNITS
     Route: 051
     Dates: start: 20091006, end: 20091006
  13. PLATELETS [Concomitant]
     Route: 051
     Dates: start: 20091001, end: 20091001
  14. DIGOXIN [Concomitant]
     Indication: DRUG USE FOR UNKNOWN INDICATION
     Route: 065
  15. POTASSIUM CHLORIDE [Concomitant]
     Indication: DRUG USE FOR UNKNOWN INDICATION
     Route: 065
  16. SENOKOT [Concomitant]
     Indication: DRUG USE FOR UNKNOWN INDICATION
     Route: 065
  17. MORPHINE [Concomitant]
     Indication: DRUG USE FOR UNKNOWN INDICATION
     Route: 065
  18. SPIRONOLACTONE [Concomitant]
     Indication: DRUG USE FOR UNKNOWN INDICATION
     Route: 065
  19. PHENYTOIN [Concomitant]
     Indication: DRUG USE FOR UNKNOWN INDICATION
     Route: 065
  20. CARAFATE [Concomitant]
     Indication: DRUG USE FOR UNKNOWN INDICATION
     Route: 065
  21. NEUPOGEN [Concomitant]
     Route: 058
     Dates: start: 20091013, end: 20091014

REACTIONS (1)
  - HAEMORRHAGE URINARY TRACT [None]
